FAERS Safety Report 4559419-0 (Version None)
Quarter: 2005Q1

REPORT INFORMATION
  Report Type: 
  Country: None (occurrence: None)
  Receive Date: 20050120
  Receipt Date: 20050120
  Transmission Date: 20050727
  Serious: Yes (Hospitalization)
  Sender: FDA-Public Use
  Company Number: None

PATIENT
  Age: 61 Year
  Sex: Male

DRUGS (2)
  1. EXCEDRIN (MIGRAINE) [Suspect]
     Indication: ARTHRITIS
     Dosage: ^NUMEROUS^ 12-16 TABS DAY
  2. EXCEDRIN (MIGRAINE) [Suspect]
     Indication: PAIN
     Dosage: ^NUMEROUS^ 12-16 TABS DAY

REACTIONS (4)
  - DIZZINESS [None]
  - MELAENA [None]
  - ULCER [None]
  - UPPER GASTROINTESTINAL HAEMORRHAGE [None]
